FAERS Safety Report 9857832 (Version 1)
Quarter: 2014Q1

REPORT INFORMATION
  Report Type: Spontaneous
  Country: DE (occurrence: DE)
  Receive Date: 20140131
  Receipt Date: 20140131
  Transmission Date: 20141002
  Serious: Yes (Hospitalization)
  Sender: FDA-Public Use
  Company Number: DE-AMGEN-DEUSP2014006563

PATIENT
  Age: 6 Year
  Sex: Male

DRUGS (1)
  1. ENBREL [Suspect]
     Indication: PSORIASIS
     Dosage: 25 MG, WEEKLY
     Route: 058
     Dates: start: 20131020

REACTIONS (2)
  - Psoriasis [Not Recovered/Not Resolved]
  - Upper limb fracture [Not Recovered/Not Resolved]
